FAERS Safety Report 21664634 (Version 1)
Quarter: 2022Q4

REPORT INFORMATION
  Report Type: Spontaneous
  Country: GB (occurrence: GB)
  Receive Date: 20221130
  Receipt Date: 20221130
  Transmission Date: 20230113
  Serious: Yes (Hospitalization)
  Sender: FDA-Public Use
  Company Number: GB-MHRA-MED-202206221627262140-KRNHT

PATIENT
  Age: 16 Year
  Sex: Male

DRUGS (1)
  1. CONCERTA [Suspect]
     Active Substance: METHYLPHENIDATE HYDROCHLORIDE
     Indication: Adverse drug reaction
     Dosage: 50MG ONCE A DAY ; ;
     Route: 065

REACTIONS (2)
  - Hallucination [Recovered/Resolved]
  - Psychotic disorder [Recovered/Resolved]
